FAERS Safety Report 23123452 (Version 2)
Quarter: 2023Q4

REPORT INFORMATION
  Report Type: Report from Study
  Country: US (occurrence: US)
  Receive Date: 20231030
  Receipt Date: 20231114
  Transmission Date: 20240109
  Serious: Yes (Disabling, Other)
  Sender: FDA-Public Use
  Company Number: US-UCBSA-2023051268

PATIENT
  Sex: Male

DRUGS (8)
  1. BRIVARACETAM [Suspect]
     Active Substance: BRIVARACETAM
     Indication: Seizure
     Dosage: 50 MILLIGRAM, 2X/DAY (BID)
     Route: 048
     Dates: start: 20231005
  2. DIVALPROEX SODIUM [Concomitant]
     Active Substance: DIVALPROEX SODIUM
     Indication: Product used for unknown indication
     Dosage: 500 MILLIGRAM, TAKE 2 TABLETS DAILY.
     Route: 048
     Dates: start: 20230914
  3. ESCITALOPRAM OXALATE [Concomitant]
     Active Substance: ESCITALOPRAM OXALATE
     Indication: Product used for unknown indication
     Dosage: 10 MILLIGRAM, TAKE 1 TABLET DAILY.
     Route: 048
     Dates: start: 20231005
  4. LACOSAMIDE [Concomitant]
     Active Substance: LACOSAMIDE
     Indication: Product used for unknown indication
     Dosage: 200 MILLIGRAM, 2X/DAY (BID)
     Route: 048
     Dates: start: 20221020
  5. NAYZILAM [Concomitant]
     Active Substance: MIDAZOLAM
     Indication: Product used for unknown indication
     Dosage: 5 MILLIGRAM, SPRAY (5MG) IN ONE NOSTRIL XI. MAX DOSE. 2 DOSES/SINGLE EPISODE. MAY REPEAT DOSE X1 IN
     Route: 045
     Dates: start: 20230928
  6. OLANZAPINE [Concomitant]
     Active Substance: OLANZAPINE
     Indication: Product used for unknown indication
     Dosage: 2.5 MILLIGRAM, TAKE 1 TABLET BY MOUTH AT BEDTIME
     Route: 048
     Dates: start: 20230926
  7. TYLENOL EXTRA STRENGTH [Concomitant]
     Active Substance: ACETAMINOPHEN
     Indication: Product used for unknown indication
     Dosage: 500 MILLIGRAM
  8. VITAMIN D3 [Concomitant]
     Active Substance: CHOLECALCIFEROL
     Indication: Product used for unknown indication
     Dosage: UNK

REACTIONS (2)
  - Craniocerebral injury [Not Recovered/Not Resolved]
  - Physical disability [Not Recovered/Not Resolved]
